FAERS Safety Report 17487564 (Version 1)
Quarter: 2020Q1

REPORT INFORMATION
  Report Type: Spontaneous
  Country: US (occurrence: US)
  Receive Date: 20200219
  Receipt Date: 20200219
  Transmission Date: 20200409
  Serious: Yes (Disabling)
  Sender: FDA-Public Use
  Company Number: None

PATIENT
  Age: 82 Year
  Sex: Female
  Weight: 50.8 kg

DRUGS (13)
  1. CEFDINIR 300MG CAP LUP [Suspect]
     Active Substance: CEFDINIR
     Indication: PULMONARY CONGESTION
     Dosage: ?          QUANTITY:14 DF DOSAGE FORM;?
     Route: 048
     Dates: start: 20191204, end: 20191207
  2. SYNTHROID [Concomitant]
     Active Substance: LEVOTHYROXINE SODIUM
  3. LASIX [Concomitant]
     Active Substance: FUROSEMIDE
  4. PORIN + POTASSIUM CHLORIDE [Concomitant]
  5. ASPIRIN. [Concomitant]
     Active Substance: ASPIRIN
  6. PROBIOTIC ACIDOPHILUS [Concomitant]
     Active Substance: LACTOBACILLUS ACIDOPHILUS
  7. WALKER [Concomitant]
  8. CEFDINIR 300MG CAP LUP [Suspect]
     Active Substance: CEFDINIR
     Indication: NASOPHARYNGITIS
     Dosage: ?          QUANTITY:14 DF DOSAGE FORM;?
     Route: 048
     Dates: start: 20191204, end: 20191207
  9. TOPROLX [Concomitant]
  10. NEUTRONTIN [Concomitant]
  11. VENTOLIN HFA [Concomitant]
     Active Substance: ALBUTEROL SULFATE
  12. CEFDINIR 300MG CAP LUP [Suspect]
     Active Substance: CEFDINIR
     Indication: HAEMOPTYSIS
     Dosage: ?          QUANTITY:14 DF DOSAGE FORM;?
     Route: 048
     Dates: start: 20191204, end: 20191207
  13. PREMARIN [Concomitant]
     Active Substance: ESTROGENS, CONJUGATED

REACTIONS (4)
  - Diarrhoea [None]
  - Frequent bowel movements [None]
  - Nausea [None]
  - Drug ineffective [None]

NARRATIVE: CASE EVENT DATE: 20191207
